FAERS Safety Report 15861588 (Version 1)
Quarter: 2019Q1

REPORT INFORMATION
  Report Type: Spontaneous
  Country: DE (occurrence: DE)
  Receive Date: 20190124
  Receipt Date: 20190124
  Transmission Date: 20190417
  Serious: Yes (Other)
  Sender: FDA-Public Use
  Company Number: DE-ACCORD-103396

PATIENT
  Sex: Male
  Weight: 3.85 kg

DRUGS (1)
  1. SERTRALINE [Suspect]
     Active Substance: SERTRALINE HYDROCHLORIDE
     Indication: DEPRESSION
     Dosage: 100 MG/D, IN PREGNANCY 100MG/D,PERIPARTAL 75MG/D, LATER AGAIN 100MG/D
     Route: 063

REACTIONS (1)
  - Agitation [Recovered/Resolved]
